FAERS Safety Report 14071720 (Version 2)
Quarter: 2018Q1

REPORT INFORMATION
  Report Type: Spontaneous
  Country: US (occurrence: US)
  Receive Date: 20171010
  Receipt Date: 20180105
  Transmission Date: 20180508
  Serious: No
  Sender: FDA-Public Use
  Company Number: US-SA-2017SA152152

PATIENT
  Age: 63 Year
  Sex: Female
  Weight: 99.8 kg

DRUGS (1)
  1. DUPIXENT [Suspect]
     Active Substance: DUPILUMAB
     Indication: DERMATITIS ATOPIC
     Route: 065
     Dates: start: 20170723, end: 20170723

REACTIONS (6)
  - Pain [Unknown]
  - Erythema [Unknown]
  - Rash erythematous [Recovered/Resolved]
  - Pain [Recovered/Resolved]
  - Pruritus [Unknown]
  - Skin burning sensation [Unknown]

NARRATIVE: CASE EVENT DATE: 20170724
